FAERS Safety Report 17692670 (Version 1)
Quarter: 2020Q2

REPORT INFORMATION
  Report Type: Report from Study
  Country: US (occurrence: US)
  Receive Date: 20200422
  Receipt Date: 20200422
  Transmission Date: 20200714
  Serious: Yes (Hospitalization, Other)
  Sender: FDA-Public Use
  Company Number: US-BRISTOL-MYERS SQUIBB COMPANY-BMS-2020-032341

PATIENT
  Age: 75 Year
  Sex: Female
  Weight: 43.54 kg

DRUGS (3)
  1. APIXABAN [Suspect]
     Active Substance: APIXABAN
     Indication: DEEP VEIN THROMBOSIS
     Dosage: 2.5 MILLIGRAM, BID
     Route: 048
     Dates: start: 202003
  2. ASPIRIN [ACETYLSALICYLIC ACID] [Concomitant]
     Active Substance: ASPIRIN
     Indication: PRODUCT USED FOR UNKNOWN INDICATION
     Route: 065
  3. OXYGEN. [Concomitant]
     Active Substance: OXYGEN
     Indication: PRODUCT USED FOR UNKNOWN INDICATION
     Route: 065

REACTIONS (9)
  - Feeling abnormal [Unknown]
  - Eye swelling [Unknown]
  - Headache [Unknown]
  - Urine output decreased [Unknown]
  - Joint swelling [Unknown]
  - Wheezing [Unknown]
  - Cardiac flutter [Unknown]
  - Abdominal distension [Unknown]
  - Burning sensation [Unknown]

NARRATIVE: CASE EVENT DATE: 20200416
